FAERS Safety Report 15250745 (Version 3)
Quarter: 2018Q3

REPORT INFORMATION
  Report Type: Spontaneous
  Country: JP (occurrence: JP)
  Receive Date: 20180807
  Receipt Date: 20180807
  Transmission Date: 20181010
  Serious: Yes (Other)
  Sender: FDA-Public Use
  Company Number: PHHY2018JP060690

PATIENT
  Sex: Male
  Weight: 1.28 kg

DRUGS (4)
  1. BETAMETHASONE. [Suspect]
     Active Substance: BETAMETHASONE
     Dosage: MATERNAL DOSE: 0.5 MG, QD
     Route: 064
  2. PREDNISOLONE. [Suspect]
     Active Substance: PREDNISOLONE
     Indication: FOETAL EXPOSURE DURING PREGNANCY
     Dosage: MATERNAL DOSE: 5 MG, QD
     Route: 065
  3. BETAMETHASONE. [Suspect]
     Active Substance: BETAMETHASONE
     Dosage: MATERNAL DOSE: 1 MG, QD
     Route: 064
  4. BETAMETHASONE. [Suspect]
     Active Substance: BETAMETHASONE
     Indication: FOETAL EXPOSURE DURING PREGNANCY
     Dosage: MATERNAL DOSE: 2 MG, QD
     Route: 064

REACTIONS (8)
  - Premature baby [Unknown]
  - Neonatal lupus erythematosus [Recovered/Resolved]
  - Neonatal respiratory distress syndrome [Unknown]
  - Low birth weight baby [Unknown]
  - Intraventricular haemorrhage [Unknown]
  - Asphyxia [Unknown]
  - Systemic lupus erythematosus rash [Recovered/Resolved]
  - Foetal exposure during pregnancy [Unknown]
